FAERS Safety Report 19168809 (Version 7)
Quarter: 2022Q1

REPORT INFORMATION
  Report Type: Report from Study
  Country: US (occurrence: US)
  Receive Date: 20210422
  Receipt Date: 20220203
  Transmission Date: 20220424
  Serious: No
  Sender: FDA-Public Use
  Company Number: US-BIOVITRUM-2021US0901

PATIENT
  Age: 50 Year
  Sex: Female

DRUGS (4)
  1. KINERET [Suspect]
     Active Substance: ANAKINRA
     Indication: Pericardial disease
     Route: 058
     Dates: start: 20201023
  2. KINERET [Suspect]
     Active Substance: ANAKINRA
     Route: 058
     Dates: start: 20210111
  3. KINERET [Suspect]
     Active Substance: ANAKINRA
     Route: 058
     Dates: start: 202012
  4. KINERET [Suspect]
     Active Substance: ANAKINRA
     Route: 058
     Dates: start: 20200111

REACTIONS (14)
  - Ear infection [Unknown]
  - Rash erythematous [Unknown]
  - Pain [Unknown]
  - Movement disorder [Unknown]
  - Gait disturbance [Unknown]
  - Myoclonic epilepsy and ragged-red fibres [Unknown]
  - Rash [Unknown]
  - Pruritus [Unknown]
  - Mitochondrial myopathy [Unknown]
  - Injection site discolouration [Unknown]
  - Product dosage form issue [Unknown]
  - Needle issue [Unknown]
  - Product dose omission issue [Unknown]
  - Off label use [Not Recovered/Not Resolved]

NARRATIVE: CASE EVENT DATE: 20200111
